FAERS Safety Report 4545505-8 (Version None)
Quarter: 2004Q4

REPORT INFORMATION
  Report Type: 
  Country: None (occurrence: None)
  Receive Date: 20041223
  Receipt Date: 20040902
  Transmission Date: 20050328
  Serious: No
  Sender: FDA-Public Use
  Company Number: US-JNJFOC-20040901859

PATIENT
  Age: 24 Year
  Sex: Female
  Weight: 122.4712 kg

DRUGS (6)
  1. ORTHO EVRA [Suspect]
     Indication: CONTRACEPTION
     Dosage: 1 DOSE(S), 3 IN 4 DAY, TRANSDERMAL
     Route: 062
     Dates: start: 20040826
  2. TYLENOL [Concomitant]
  3. ALEVE [Concomitant]
  4. ATENOLOL [Concomitant]
  5. TRIMETHOPRIM SULFAMETHOXAZOLE (TRIMETHOPRIM) [Concomitant]
  6. FAMOTIDINE [Concomitant]

REACTIONS (4)
  - HEADACHE [None]
  - MOOD ALTERED [None]
  - NASAL DISCOMFORT [None]
  - NAUSEA [None]
